FAERS Safety Report 5714627-8 (Version None)
Quarter: 2008Q2

REPORT INFORMATION
  Report Type: 
  Country: None (occurrence: None)
  Receive Date: 20080423
  Receipt Date: 20080418
  Transmission Date: 20081010
  Serious: Yes (Other)
  Sender: FDA-Public Use
  Company Number: B0517530A

PATIENT
  Age: 3 Year
  Sex: Male

DRUGS (1)
  1. CLENIL [Suspect]
     Indication: DRUG USE FOR UNKNOWN INDICATION
     Route: 055

REACTIONS (4)
  - ERYTHEMA [None]
  - LIP PAIN [None]
  - LIP SWELLING [None]
  - PAIN [None]
